FAERS Safety Report 25719364 (Version 2)
Quarter: 2025Q3

REPORT INFORMATION
  Report Type: Report from Study
  Country: JP (occurrence: JP)
  Receive Date: 20250824
  Receipt Date: 20250828
  Transmission Date: 20251021
  Serious: Yes (Hospitalization)
  Sender: TAKEDA
  Company Number: JP-TAKEDA-2025TJP008434

PATIENT
  Age: 74 Year
  Sex: Male

DRUGS (1)
  1. FRUQUINTINIB [Suspect]
     Active Substance: FRUQUINTINIB
     Indication: Product used for unknown indication
     Dates: start: 20250710, end: 20250813

REACTIONS (2)
  - Malaise [Not Recovered/Not Resolved]
  - Abscess [Unknown]

NARRATIVE: CASE EVENT DATE: 20250812
